FAERS Safety Report 23439868 (Version 1)
Quarter: 2024Q1

REPORT INFORMATION
  Report Type: Spontaneous
  Country: US (occurrence: US)
  Receive Date: 20240124
  Receipt Date: 20240124
  Transmission Date: 20240410
  Serious: No
  Sender: FDA-Public Use
  Company Number: US-Covis Pharma GmbH-2024COV00066

PATIENT
  Age: 71 Year
  Sex: Female

DRUGS (2)
  1. ALVESCO [Suspect]
     Active Substance: CICLESONIDE
     Indication: Asthma
     Dosage: 1 PUFF TWICE DAILY.
     Route: 055
  2. ALVESCO [Suspect]
     Active Substance: CICLESONIDE
     Dosage: 2 PUFF TWICE DAILY.
     Route: 055
     Dates: start: 2014

REACTIONS (3)
  - Asthma [Unknown]
  - Product dose omission issue [Unknown]
  - Intentional product use issue [Unknown]
